FAERS Safety Report 23239356 (Version 1)
Quarter: 2023Q4

REPORT INFORMATION
  Report Type: Spontaneous
  Country: US (occurrence: US)
  Receive Date: 20231129
  Receipt Date: 20231129
  Transmission Date: 20240110
  Serious: Yes (Other)
  Sender: FDA-Public Use
  Company Number: US-BRISTOL-MYERS SQUIBB COMPANY-2023-170119

PATIENT
  Age: 73 Year
  Sex: Female

DRUGS (9)
  1. POMALYST [Suspect]
     Active Substance: POMALIDOMIDE
     Indication: Plasma cell myeloma
     Dosage: TAKE 1 CAPSULE (4 MG TOTAL) BY MOUTH ONCE DAILY. TAKE ON DAYS 1-21, THEN 7 DAYS OFF.  REPEAT CYCLE E
     Route: 048
     Dates: start: 20230627
  2. ACYCLOVIR [Concomitant]
     Active Substance: ACYCLOVIR
     Indication: Product used for unknown indication
  3. DEXAMETHASONE PHOSPHATE [Concomitant]
     Active Substance: DEXAMETHASONE PHOSPHATE
     Indication: Product used for unknown indication
     Dosage: 20MG/5ML
  4. DEXAMETHASONE ACETATE [Concomitant]
     Active Substance: DEXAMETHASONE ACETATE
     Indication: Product used for unknown indication
  5. EMPLICITI [Concomitant]
     Active Substance: ELOTUZUMAB
     Indication: Product used for unknown indication
  6. ONDANSETRON [Concomitant]
     Active Substance: ONDANSETRON
     Indication: Product used for unknown indication
  7. ONE A DAY WOMEN^S [ASCORBIC ACID;BETACAROTENE;BIOTIN;CALCIUM CARBONATE [Concomitant]
     Indication: Product used for unknown indication
  8. PROCHLORPERAZINE MALEATE [Concomitant]
     Active Substance: PROCHLORPERAZINE MALEATE
     Indication: Product used for unknown indication
  9. ERGOCALCIFEROL [Concomitant]
     Active Substance: ERGOCALCIFEROL
     Indication: Product used for unknown indication
     Dosage: 1000 UNIT

REACTIONS (4)
  - Fatigue [Unknown]
  - Dyspnoea exertional [Recovering/Resolving]
  - Neutropenia [Unknown]
  - Plasma cell myeloma [Unknown]
